FAERS Safety Report 7084232-2 (Version None)
Quarter: 2010Q4

REPORT INFORMATION
  Report Type: 
  Country: None (occurrence: None)
  Receive Date: 20101104
  Receipt Date: 20101102
  Transmission Date: 20110411
  Serious: Yes (Hospitalization)
  Sender: FDA-Public Use
  Company Number: SG-PFIZER INC-2006001578

PATIENT
  Age: 38 Year
  Sex: Female
  Weight: 47.1 kg

DRUGS (10)
  1. SUNITINIB MALATE [Suspect]
     Indication: GASTROINTESTINAL STROMAL TUMOUR
     Dosage: 37.5 MG, 1X/DAY
     Route: 048
     Dates: start: 20051014, end: 20051230
  2. CELEBREX [Concomitant]
     Route: 048
     Dates: start: 20040826
  3. OMEPRAZOLE [Concomitant]
     Route: 048
     Dates: start: 20050203
  4. RAMIPRIL [Concomitant]
     Route: 048
     Dates: start: 20050301
  5. SANGOBION [Concomitant]
     Route: 048
     Dates: start: 20050720
  6. ATENOLOL [Concomitant]
     Route: 048
     Dates: start: 20050412
  7. DOMPERIDONE [Concomitant]
     Route: 048
  8. FRUSEMIDE [Concomitant]
     Route: 048
     Dates: start: 20051102
  9. AZUNOL [Concomitant]
     Route: 061
     Dates: start: 20051117
  10. GENTAMICIN [Concomitant]
     Route: 061
     Dates: start: 20051117

REACTIONS (2)
  - DIARRHOEA [None]
  - PNEUMONIA [None]
